FAERS Safety Report 8763630 (Version 3)
Quarter: 2012Q4

REPORT INFORMATION
  Report Type: 
  Country: AR (occurrence: AR)
  Receive Date: 20120830
  Receipt Date: 20121026
  Transmission Date: 20130627
  Serious: Yes (Death, Hospitalization, Other)
  Sender: FDA-Public Use
  Company Number: AR-AMGEN-ARGSP2012053565

PATIENT
  Age: 62 Year
  Sex: Male

DRUGS (3)
  1. ENBREL [Suspect]
     Indication: RHEUMATOID ARTHRITIS
     Dosage: 50 mg, weekly
     Route: 058
     Dates: start: 20051017, end: 201203
  2. METHOTREXATE [Concomitant]
     Dosage: UNK
     Route: 048
  3. ATENOLOL [Concomitant]
     Dosage: UNK
     Route: 048

REACTIONS (2)
  - Hepatic haemorrhage [Fatal]
  - Cholelithiasis [Not Recovered/Not Resolved]
